FAERS Safety Report 17022741 (Version 1)
Quarter: 2019Q4

REPORT INFORMATION
  Report Type: Spontaneous
  Country: US (occurrence: US)
  Receive Date: 20191112
  Receipt Date: 20191112
  Transmission Date: 20200122
  Serious: No
  Sender: FDA-Public Use
  Company Number: US-009507513-1910USA017431

PATIENT
  Age: 56 Year
  Sex: Female

DRUGS (8)
  1. NOXAFIL [Suspect]
     Active Substance: POSACONAZOLE
     Indication: EVIDENCE BASED TREATMENT
     Dosage: UNK
  2. NOXAFIL [Suspect]
     Active Substance: POSACONAZOLE
     Indication: CHEST PAIN
  3. NOXAFIL [Suspect]
     Active Substance: POSACONAZOLE
     Indication: COUGH
  4. MEROPENEM. [Concomitant]
     Active Substance: MEROPENEM
     Indication: EVIDENCE BASED TREATMENT
     Dosage: UNK
  5. MEROPENEM. [Concomitant]
     Active Substance: MEROPENEM
     Indication: CHEST PAIN
  6. MEROPENEM. [Concomitant]
     Active Substance: MEROPENEM
     Indication: BREATH SOUNDS ABNORMAL
  7. NOXAFIL [Suspect]
     Active Substance: POSACONAZOLE
     Indication: BREATH SOUNDS ABNORMAL
  8. MEROPENEM. [Concomitant]
     Active Substance: MEROPENEM
     Indication: COUGH

REACTIONS (1)
  - Product use in unapproved indication [Unknown]
